FAERS Safety Report 14108792 (Version 1)
Quarter: 2017Q4

REPORT INFORMATION
  Report Type: Not Available
  Country: US (occurrence: US)
  Receive Date: 20171019
  Receipt Date: 20171019
  Transmission Date: 20180321
  Serious: No
  Sender: FDA-Public Use
  Company Number: US-NEUROCRINE BIOSCIENCES INC.-2017NBI00760

PATIENT
  Age: 63 Year
  Sex: Female

DRUGS (4)
  1. GEODON [Concomitant]
     Active Substance: ZIPRASIDONE HYDROCHLORIDE\ZIPRASIDONE MESYLATE
  2. REMERON [Concomitant]
     Active Substance: MIRTAZAPINE
  3. INGREZZA [Suspect]
     Active Substance: VALBENAZINE
     Indication: PRODUCT USED FOR UNKNOWN INDICATION
     Route: 048
     Dates: start: 20170804
  4. PROZAC [Concomitant]
     Active Substance: FLUOXETINE HYDROCHLORIDE

REACTIONS (1)
  - Kidney infection [Unknown]

NARRATIVE: CASE EVENT DATE: 20170822
